FAERS Safety Report 6636469-1 (Version None)
Quarter: 2010Q1

REPORT INFORMATION
  Report Type: 
  Country: None (occurrence: None)
  Receive Date: 20100316
  Receipt Date: 20100303
  Transmission Date: 20100710
  Serious: Yes (Hospitalization)
  Sender: FDA-Public Use
  Company Number: DE-PFIZER INC-2010015352

PATIENT
  Age: 24 Year
  Sex: Female
  Weight: 65 kg

DRUGS (2)
  1. ZELDOX [Suspect]
     Indication: SCHIZOPHRENIA
     Dosage: 20 MG, 1X/DAY X 2 DAYS
     Route: 048
     Dates: start: 20090101, end: 20090101
  2. ZELDOX [Suspect]
     Indication: PSYCHOTIC DISORDER
     Dosage: 20 MG, 2X/DAY
     Route: 048
     Dates: start: 20091201, end: 20091220

REACTIONS (6)
  - ANXIETY [None]
  - CRYING [None]
  - EXTRAPYRAMIDAL DISORDER [None]
  - MASKED FACIES [None]
  - MUSCLE RIGIDITY [None]
  - RESTLESSNESS [None]
